FAERS Safety Report 7465250-9 (Version None)
Quarter: 2011Q2

REPORT INFORMATION
  Report Type: 
  Country: None (occurrence: None)
  Receive Date: 20110509
  Receipt Date: 20110427
  Transmission Date: 20111010
  Serious: Yes (Other)
  Sender: FDA-Public Use
  Company Number: PHHY2009JP42768

PATIENT
  Sex: Female

DRUGS (5)
  1. FLOMAX [Concomitant]
     Dosage: 300 MG, UNK
     Route: 048
     Dates: start: 20090410, end: 20090412
  2. TASIGNA [Suspect]
     Dosage: 400MG/200MG DAILY
     Route: 048
     Dates: start: 20100330
  3. TASIGNA [Suspect]
     Indication: CHRONIC MYELOID LEUKAEMIA
     Dosage: 400 MG, DAILY
     Route: 048
     Dates: start: 20090411, end: 20090501
  4. TASIGNA [Suspect]
     Dosage: 200 MG, DAILY
     Route: 048
     Dates: start: 20100101, end: 20100329
  5. KENALOG [Concomitant]
     Indication: STOMATITIS
     Dosage: UNK
     Route: 048
     Dates: start: 20090410

REACTIONS (4)
  - PLATELET COUNT DECREASED [None]
  - AGRANULOCYTOSIS [None]
  - SKIN DISORDER [None]
  - HYPERBILIRUBINAEMIA [None]
